FAERS Safety Report 4385645-X (Version None)
Quarter: 2004Q2

REPORT INFORMATION
  Report Type: 
  Country: None (occurrence: None)
  Receive Date: 20040623
  Receipt Date: 20040608
  Transmission Date: 20050107
  Serious: Yes (Death, Other)
  Sender: FDA-Public Use
  Company Number: ENT 2004-0109

PATIENT
  Age: 60 Year
  Sex: Male

DRUGS (4)
  1. COMTESS (ENTACAPONE) [Suspect]
     Indication: PARKINSON'S DISEASE
  2. DOPAMINE HCL [Concomitant]
  3. PREDNISOLONE [Concomitant]
  4. NEORAL [Suspect]
     Indication: RENAL TRANSPLANT
     Dosage: 175 MG
     Route: 048
     Dates: start: 19960124

REACTIONS (8)
  - ASTHENIA [None]
  - AZOTAEMIA [None]
  - CACHEXIA [None]
  - DEEP VEIN THROMBOSIS [None]
  - GENERAL PHYSICAL HEALTH DETERIORATION [None]
  - HALLUCINATION [None]
  - MARKEDLY REDUCED DIETARY INTAKE [None]
  - OVERDOSE [None]
